FAERS Safety Report 5907234-5 (Version None)
Quarter: 2008Q4

REPORT INFORMATION
  Report Type: 
  Country: None (occurrence: None)
  Receive Date: 20081003
  Receipt Date: 20080926
  Transmission Date: 20090506
  Serious: Yes (Other)
  Sender: FDA-Public Use
  Company Number: PHHY2008JP22712

PATIENT
  Age: 79 Year
  Sex: Male

DRUGS (1)
  1. EXJADE [Suspect]
     Indication: MYELODYSPLASTIC SYNDROME
     Dosage: 10 MG/KG/DAY
     Route: 048
     Dates: start: 20080806, end: 20080901

REACTIONS (2)
  - CHEST PAIN [None]
  - OESOPHAGEAL ULCER [None]
